FAERS Safety Report 7755588-X (Version None)
Quarter: 2011Q3

REPORT INFORMATION
  Report Type: 
  Country: None (occurrence: None)
  Receive Date: 20110915
  Receipt Date: 20110915
  Transmission Date: 20111222
  Serious: Yes (Other)
  Sender: FDA-Public Use
  Company Number: None

PATIENT
  Sex: Female

DRUGS (1)
  1. NEUPOGEN 300MCG SINGLEJECT SYR 300MG AMGEN [Suspect]
     Indication: NEUTROPENIA
     Dosage: 300MCG TIW SQ
     Route: 058
     Dates: start: 20110305, end: 20110910

REACTIONS (1)
  - URTICARIA [None]
